FAERS Safety Report 7321517-6 (Version None)
Quarter: 2011Q1

REPORT INFORMATION
  Report Type: 
  Country: None (occurrence: None)
  Receive Date: 20110228
  Receipt Date: 20110218
  Transmission Date: 20110831
  Serious: Yes (Hospitalization)
  Sender: FDA-Public Use
  Company Number: NL-MEDIMMUNE-MEDI-0012727

PATIENT
  Sex: Female
  Weight: 4.8 kg

DRUGS (4)
  1. SYNAGIS [Suspect]
     Indication: HYPOPLASTIC LEFT HEART SYNDROME
     Route: 030
     Dates: start: 20101203, end: 20110125
  2. SPIRONOLACTONE [Concomitant]
  3. ACETYLSALICYLATE CALCIUM [Concomitant]
  4. FUROSEMIDE [Concomitant]

REACTIONS (5)
  - HEART VALVE INCOMPETENCE [None]
  - PYREXIA [None]
  - EPILEPSY [None]
  - RENAL IMPAIRMENT [None]
  - ARRHYTHMIA [None]
